FAERS Safety Report 9633484 (Version 1)
Quarter: 2013Q4

REPORT INFORMATION
  Report Type: Spontaneous
  Country: US (occurrence: US)
  Receive Date: 20131021
  Receipt Date: 20131021
  Transmission Date: 20140711
  Serious: Yes (Hospitalization, Other)
  Sender: FDA-Public Use
  Company Number: US-TEVA-438914USA

PATIENT
  Age: 49 Year
  Sex: Female
  Weight: 86.26 kg

DRUGS (6)
  1. GABITRIL [Suspect]
     Indication: ANXIETY
     Dosage: 4 MILLIGRAM DAILY;
     Dates: start: 20130828
  2. GABITRIL [Suspect]
     Indication: FIBROMYALGIA
  3. GABITRIL [Suspect]
     Indication: MIGRAINE
  4. CLONAZEPAM [Concomitant]
     Indication: INSOMNIA
     Dosage: 1 MILLIGRAM DAILY;
     Route: 048
  5. MELATONIN [Concomitant]
     Indication: INSOMNIA
  6. SYNTHROID [Concomitant]
     Indication: HYPOTHYROIDISM
     Dosage: 25 MICROGRAM DAILY;
     Route: 048

REACTIONS (2)
  - Convulsion [Recovered/Resolved]
  - Off label use [Unknown]
